FAERS Safety Report 4813097-1 (Version None)
Quarter: 2005Q4

REPORT INFORMATION
  Report Type: 
  Country: None (occurrence: None)
  Receive Date: 20051028
  Receipt Date: 20050614
  Transmission Date: 20060501
  Serious: No
  Sender: FDA-Public Use
  Company Number: US-GLAXOSMITHKLINE-A0562610A

PATIENT
  Age: 62 Year
  Sex: Female

DRUGS (2)
  1. ADVAIR DISKUS 100/50 [Suspect]
     Indication: DRUG USE FOR UNKNOWN INDICATION
     Dosage: 100MCG PER DAY
     Route: 055
     Dates: start: 20050401, end: 20050501
  2. FLONASE [Concomitant]

REACTIONS (3)
  - DYSURIA [None]
  - PRURITUS [None]
  - URTICARIA [None]
